FAERS Safety Report 7571543-7 (Version None)
Quarter: 2011Q2

REPORT INFORMATION
  Report Type: 
  Country: None (occurrence: None)
  Receive Date: 20110624
  Receipt Date: 20110615
  Transmission Date: 20111010
  Serious: Yes (Hospitalization)
  Sender: FDA-Public Use
  Company Number: FR-JNJFOC-20101104181

PATIENT
  Sex: Female
  Weight: 4.21 kg

DRUGS (1)
  1. KETOCONAZOLE [Suspect]
     Indication: DRUG EXPOSURE DURING PREGNANCY
     Route: 015
     Dates: start: 20100328

REACTIONS (1)
  - JAUNDICE [None]
